FAERS Safety Report 10025727 (Version 1)
Quarter: 2014Q1

REPORT INFORMATION
  Report Type: Spontaneous
  Country: US (occurrence: None)
  Receive Date: 20140318
  Receipt Date: 20140318
  Transmission Date: 20141002
  Serious: Yes (Other)
  Sender: FDA-Public Use
  Company Number: 2014P1002021

PATIENT
  Age: 53 Year
  Sex: Female
  Weight: 44 kg

DRUGS (18)
  1. BUTALBITAL, ASPIRIN AND CAFFEINE [Suspect]
     Indication: HEADACHE
     Route: 048
     Dates: start: 1969, end: 201311
  2. CYCLOBENZAPRINE [Suspect]
  3. LANSOPRAZOLE [Concomitant]
  4. MELOXICAM [Suspect]
  5. TOPIRAMATE [Concomitant]
  6. ICYMBALTA [Concomitant]
  7. TRIAMTERENE HCTZ [Concomitant]
  8. CALCIUM [Concomitant]
  9. MULTIVITAMIN [Concomitant]
  10. HYDROCODONE/ACETAMINOPHEN [Concomitant]
  11. SUMATRIPTAN [Suspect]
  12. POLYETHYLENE GLYCOL 1450 [Concomitant]
  13. NYSTATIN CREAM [Concomitant]
  14. ROMITIL [Concomitant]
  15. IMODIUM [Concomitant]
  16. NEO/POLY/DEX OINTMENT [Concomitant]
  17. EPINASTINE OPHTHALMIC DROP [Concomitant]
  18. RANITIDINE [Concomitant]

REACTIONS (4)
  - Middle ear disorder [None]
  - Product substitution issue [None]
  - Drug ineffective [None]
  - Ear pain [None]
